FAERS Safety Report 6267602-1 (Version None)
Quarter: 2009Q3

REPORT INFORMATION
  Report Type: 
  Country: None (occurrence: None)
  Receive Date: 20090714
  Receipt Date: 20090706
  Transmission Date: 20100115
  Serious: Yes (Other)
  Sender: FDA-Public Use
  Company Number: US-ELI_LILLY_AND_COMPANY-US200907001194

PATIENT
  Sex: Female

DRUGS (14)
  1. FORTEO [Suspect]
     Dates: start: 20090519
  2. CYMBALTA [Concomitant]
     Indication: FIBROMYALGIA
     Dosage: UNK, DAILY (1/D)
     Dates: start: 20080101
  3. COMBIVENT [Concomitant]
  4. ADVAIR HFA [Concomitant]
  5. PREDNISONE TAB [Concomitant]
  6. LORAZEPAM [Concomitant]
  7. ACTONEL [Concomitant]
  8. GABAPENTIN [Concomitant]
  9. HYDROCODONE [Concomitant]
     Dosage: 5500
  10. RISPERDAL [Concomitant]
     Dosage: .5
  11. SINGULAIR [Concomitant]
  12. FLUOXETINE HCL [Concomitant]
     Dosage: 10 MG, UNK
  13. METHENAMINE TAB [Concomitant]
     Dosage: 1 MG, UNK
  14. CARBIDOPA AND LEVODOPA [Concomitant]
     Indication: PARKINSON'S DISEASE
     Dosage: 25-100

REACTIONS (3)
  - FALL [None]
  - FRACTURE [None]
  - URINARY TRACT INFECTION [None]
